FAERS Safety Report 20165808 (Version 1)
Quarter: 2021Q4

REPORT INFORMATION
  Report Type: Spontaneous
  Country: CO (occurrence: CO)
  Receive Date: 20211209
  Receipt Date: 20211209
  Transmission Date: 20220304
  Serious: No
  Sender: FDA-Public Use
  Company Number: CO-PFIZER INC-2021021882

PATIENT
  Sex: Female

DRUGS (1)
  1. GENOTROPIN [Suspect]
     Active Substance: SOMATROPIN
     Dosage: 1.4 -1.6 MG, DAILY
     Route: 058

REACTIONS (4)
  - Incorrect dose administered by device [Unknown]
  - Drug dose omission by device [Unknown]
  - Poor quality device used [Unknown]
  - Device occlusion [Unknown]

NARRATIVE: CASE EVENT DATE: 20210109
